FAERS Safety Report 25884164 (Version 1)
Quarter: 2025Q4

REPORT INFORMATION
  Report Type: Spontaneous
  Country: US (occurrence: None)
  Receive Date: 20251003
  Receipt Date: 20251003
  Transmission Date: 20260117
  Serious: Yes (unspecified)
  Sender: FDA-CTU
  Company Number: None

PATIENT
  Age: 59 Year
  Sex: Male
  Weight: 94.5 kg

DRUGS (9)
  1. LENACAPAVIR [Suspect]
     Active Substance: LENACAPAVIR
     Indication: Prophylaxis against HIV infection
     Dosage: OTHER QUANTITY : 2 INJECTION(S);?OTHER FREQUENCY : EVERY 26 MONTHS;?OTHER ROUTE : ONE INJECTION IN EACH SIDE OF THE BELLY;?
     Route: 050
     Dates: start: 20250930
  2. GABAPENTIN [Concomitant]
     Active Substance: GABAPENTIN
  3. WELLBUTRIN [Concomitant]
     Active Substance: BUPROPION HYDROCHLORIDE
  4. ATORVASTATIN [Concomitant]
     Active Substance: ATORVASTATIN
  5. OMEPRAZOLE [Concomitant]
     Active Substance: OMEPRAZOLE
  6. HYDROCHLOROTHIAZIDE [Concomitant]
     Active Substance: HYDROCHLOROTHIAZIDE
  7. Anorro [Concomitant]
  8. ALBUTEROL [Concomitant]
     Active Substance: ALBUTEROL
  9. VITAMIN D [Concomitant]
     Active Substance: VITAMIN D NOS

REACTIONS (5)
  - Injection site swelling [None]
  - Injection site erythema [None]
  - Infusion site warmth [None]
  - Infusion site pain [None]
  - Injection site nodule [None]

NARRATIVE: CASE EVENT DATE: 20251002
